FAERS Safety Report 19666424 (Version 1)
Quarter: 2021Q3

REPORT INFORMATION
  Report Type: Spontaneous
  Country: US (occurrence: US)
  Receive Date: 20210720
  Receipt Date: 20210720
  Transmission Date: 20211014
  Serious: Yes (Hospitalization)
  Sender: FDA-Public Use
  Company Number: None

PATIENT
  Age: 62 Year
  Sex: Female
  Weight: 46.72 kg

DRUGS (2)
  1. CYRAMZA [Concomitant]
     Active Substance: RAMUCIRUMAB
  2. CYRAMZA [Suspect]
     Active Substance: RAMUCIRUMAB
     Indication: NEOPLASM MALIGNANT
     Route: 042

REACTIONS (5)
  - Headache [None]
  - Hypertension [None]
  - Tachycardia [None]
  - Peripheral swelling [None]
  - Epistaxis [None]

NARRATIVE: CASE EVENT DATE: 20210720
